FAERS Safety Report 15108833 (Version 1)
Quarter: 2018Q3

REPORT INFORMATION
  Report Type: Spontaneous
  Country: SA (occurrence: SA)
  Receive Date: 20180705
  Receipt Date: 20180705
  Transmission Date: 20181010
  Serious: Yes (Hospitalization, Other)
  Sender: FDA-Public Use
  Company Number: SA-ALVOGEN-2018-ALVOGEN-096680

PATIENT
  Age: 24 Year
  Sex: Female

DRUGS (3)
  1. FENTANYL. [Suspect]
     Active Substance: FENTANYL
     Indication: PAIN MANAGEMENT
     Route: 008
  2. BUPIVACAINE. [Concomitant]
     Active Substance: BUPIVACAINE
     Indication: PAIN MANAGEMENT
     Dosage: 115 ML (0.5) BUPIVACAINE
     Route: 008
  3. LIDOCAINE. [Concomitant]
     Active Substance: LIDOCAINE
     Indication: PAIN MANAGEMENT
     Dosage: 40 ML (2%) LIDOCAINE
     Route: 008

REACTIONS (1)
  - Myoclonus [Recovered/Resolved]
